FAERS Safety Report 7576643-3 (Version None)
Quarter: 2011Q2

REPORT INFORMATION
  Report Type: 
  Country: None (occurrence: None)
  Receive Date: 20110628
  Receipt Date: 20081027
  Transmission Date: 20111010
  Serious: Yes (Other)
  Sender: FDA-Public Use
  Company Number: US-BAYER-200836324NA

PATIENT
  Age: 51 Year
  Sex: Female
  Weight: 108.84 kg

DRUGS (13)
  1. LIPITOR [Concomitant]
     Dosage: 10MG
     Route: 048
  2. RED BLOOD CELLS [Concomitant]
     Dosage: 6 U, UNK
     Dates: start: 20050906
  3. HEPARIN [Concomitant]
  4. LOPRESSOR [Concomitant]
     Dosage: 50MG
     Route: 048
  5. AVAPRO [Concomitant]
     Dosage: 15MG
     Route: 048
  6. INSULIN [Concomitant]
  7. TRASYLOL [Suspect]
     Dosage: LOADING DOSE- 10,000 KIU
     Dates: start: 20050906, end: 20050906
  8. TRASYLOL [Suspect]
  9. PROTAMINE SULFATE [Concomitant]
  10. TRASYLOL [Suspect]
     Indication: CORONARY ARTERY BYPASS
     Dosage: TEST DOSE - 1ML
     Route: 042
     Dates: start: 20050906, end: 20050906
  11. NOVOLIN [INSULIN] [Concomitant]
     Dosage: VARIABLE
     Route: 058
  12. ACETYLSALICYLIC ACID SRT [Concomitant]
     Dosage: 81MG
     Route: 048
  13. LASIX [Concomitant]
     Dosage: 80MG
     Route: 048

REACTIONS (9)
  - PAIN [None]
  - STRESS [None]
  - ANXIETY [None]
  - RENAL INJURY [None]
  - UNEVALUABLE EVENT [None]
  - FEAR [None]
  - RENAL FAILURE [None]
  - RENAL IMPAIRMENT [None]
  - EMOTIONAL DISTRESS [None]
